FAERS Safety Report 7744905 (Version 4)
Quarter: 2012Q4

REPORT INFORMATION
  Report Type: Report from Study
  Country: KR (occurrence: KR)
  Receive Date: 20101230
  Receipt Date: 20121127
  Transmission Date: 20130627
  Serious: Yes (Death, Hospitalization)
  Sender: FDA-Public Use
  Company Number: PHHO2010KR18666

PATIENT
  Age: 83 Year
  Sex: Female
  Weight: 59 kg

DRUGS (11)
  1. EVEROLIMUS [Suspect]
     Indication: THYROID CANCER
     Dosage: 10 mg, QD
     Route: 048
     Dates: start: 20101021, end: 20101207
  2. CHEMOTHERAPEUTICS NOS [Concomitant]
  3. ULTRACET [Concomitant]
     Dosage: UNK
  4. MEGESTROL ACETATE [Concomitant]
     Dosage: UNK
  5. LEVOTHYROXINE SODIUM [Concomitant]
     Dosage: UNK
  6. CALCITRIOL [Concomitant]
     Dosage: UNK
  7. CALCIUM GLUCONATE [Concomitant]
     Dosage: UNK
  8. FELODIPINE [Concomitant]
     Dosage: UNK
     Dates: end: 20101214
  9. OXYCODONE [Concomitant]
     Dosage: UNK
     Dates: start: 20101021
  10. DEXTROSE [Concomitant]
     Dosage: UNK
     Dates: start: 20101119, end: 20101119
  11. SALINE [Concomitant]
     Dosage: UNK
     Dates: start: 20101119, end: 20101119

REACTIONS (15)
  - Brain natriuretic peptide increased [Fatal]
  - Urine output decreased [Fatal]
  - Renal failure acute [Recovered/Resolved]
  - Dehydration [Recovered/Resolved]
  - Hypophagia [Not Recovered/Not Resolved]
  - Aspiration [Fatal]
  - Oxygen saturation decreased [Fatal]
  - Pulmonary oedema [Fatal]
  - Dyspnoea [Fatal]
  - Cough [Fatal]
  - Asthenia [Fatal]
  - Rales [Fatal]
  - Oedema [Fatal]
  - Hypoxia [Fatal]
  - Cardiac enzymes increased [Fatal]
